FAERS Safety Report 7505760-9 (Version None)
Quarter: 2011Q2

REPORT INFORMATION
  Report Type: 
  Country: None (occurrence: None)
  Receive Date: 20110526
  Receipt Date: 20110517
  Transmission Date: 20111010
  Serious: Yes (Hospitalization)
  Sender: FDA-Public Use
  Company Number: CN-ASTRAZENECA-2011SE27206

PATIENT
  Sex: Female

DRUGS (2)
  1. NAROPIN [Suspect]
     Indication: ANAESTHESIA
     Dates: start: 20110501
  2. TUOREN COMBINED SPINAL-EPIDURAL ANESTHESIA KITS [Concomitant]

REACTIONS (1)
  - SENSORY DISTURBANCE [None]
